FAERS Safety Report 6073828-2 (Version None)
Quarter: 2009Q1

REPORT INFORMATION
  Report Type: 
  Country: None (occurrence: None)
  Receive Date: 20090209
  Receipt Date: 20090209
  Transmission Date: 20090719
  Serious: Yes (Other)
  Sender: FDA-Public Use
  Company Number: None

PATIENT
  Age: 58 Year
  Sex: Male
  Weight: 108.8633 kg

DRUGS (2)
  1. CRESTOR [Suspect]
     Indication: CARDIAC DISORDER
     Dosage: 1 TABLET DAILY AT BEDTIME PO
     Route: 048
     Dates: start: 20080901, end: 20090129
  2. CRESTOR [Suspect]
     Indication: PROPHYLAXIS
     Dosage: 1 TABLET DAILY AT BEDTIME PO
     Route: 048
     Dates: start: 20080901, end: 20090129

REACTIONS (6)
  - ABASIA [None]
  - INSOMNIA [None]
  - MUSCULAR WEAKNESS [None]
  - MYALGIA [None]
  - PAIN IN EXTREMITY [None]
  - QUALITY OF LIFE DECREASED [None]
